FAERS Safety Report 10085861 (Version 1)
Quarter: 2014Q2

REPORT INFORMATION
  Report Type: Spontaneous
  Country: US (occurrence: US)
  Receive Date: 20140418
  Receipt Date: 20140418
  Transmission Date: 20141212
  Serious: No
  Sender: FDA-Public Use
  Company Number: US-PFIZER INC-2014105759

PATIENT
  Age: 68 Year
  Sex: Male
  Weight: 77.1 kg

DRUGS (4)
  1. DEPO-TESTOSTERONE [Suspect]
     Indication: COORDINATION ABNORMAL
     Dosage: 1 ML, DAILY
     Dates: start: 2012
  2. CLONIDINE [Concomitant]
     Indication: BLOOD PRESSURE ABNORMAL
     Dosage: UNK
  3. AMLODIPINE [Concomitant]
     Indication: BLOOD PRESSURE ABNORMAL
     Dosage: UNK
  4. METOPROLOL [Concomitant]
     Indication: BLOOD PRESSURE ABNORMAL
     Dosage: UNK

REACTIONS (2)
  - Coordination abnormal [Unknown]
  - Product quality issue [Unknown]
